FAERS Safety Report 23792190 (Version 1)
Quarter: 2024Q2

REPORT INFORMATION
  Report Type: Spontaneous
  Country: US (occurrence: US)
  Receive Date: 20240429
  Receipt Date: 20240429
  Transmission Date: 20240716
  Serious: No
  Sender: FDA-Public Use
  Company Number: US-APOTEX-2024AP005176

PATIENT
  Sex: Female

DRUGS (5)
  1. DOXYCYCLINE [Suspect]
     Active Substance: DOXYCYCLINE
     Indication: Dermatitis acneiform
     Dosage: UNK
     Route: 048
  2. TRAMETINIB [Concomitant]
     Active Substance: TRAMETINIB
     Indication: Disease recurrence
     Dosage: UNK
     Route: 065
  3. TRAMETINIB [Concomitant]
     Active Substance: TRAMETINIB
     Indication: K-ras gene mutation
  4. TRAMETINIB [Concomitant]
     Active Substance: TRAMETINIB
     Indication: Drug resistance
  5. TRIAMCINOLONE [Concomitant]
     Active Substance: TRIAMCINOLONE
     Indication: Dermatitis acneiform
     Dosage: UNK
     Route: 061

REACTIONS (1)
  - Gastrointestinal disorder [Unknown]
